FAERS Safety Report 21629940 (Version 2)
Quarter: 2022Q4

REPORT INFORMATION
  Report Type: Spontaneous
  Country: JP (occurrence: JP)
  Receive Date: 20221122
  Receipt Date: 20221201
  Transmission Date: 20230113
  Serious: Yes (Life-Threatening)
  Sender: FDA-Public Use
  Company Number: JP-Eisai-202210166_DVG_P_1

PATIENT
  Age: 106 Year
  Sex: Female

DRUGS (5)
  1. DAYVIGO [Suspect]
     Active Substance: LEMBOREXANT
     Indication: Insomnia
     Route: 048
     Dates: start: 20221018, end: 20221020
  2. ADALAT CC [Concomitant]
     Active Substance: NIFEDIPINE
     Indication: Product used for unknown indication
     Route: 065
  3. MICARDIS [Concomitant]
     Active Substance: TELMISARTAN
     Indication: Product used for unknown indication
     Route: 065
  4. PURSENNID [Concomitant]
     Indication: Product used for unknown indication
     Route: 065
  5. HERBALS [Concomitant]
     Active Substance: HERBALS
     Indication: Product used for unknown indication
     Route: 065
     Dates: end: 20221020

REACTIONS (4)
  - Depressed level of consciousness [Recovering/Resolving]
  - Dizziness [Recovering/Resolving]
  - Fall [Unknown]
  - Feeding disorder [Unknown]

NARRATIVE: CASE EVENT DATE: 20221019
